FAERS Safety Report 16094097 (Version 1)
Quarter: 2019Q1

REPORT INFORMATION
  Report Type: Spontaneous
  Country: GB (occurrence: GB)
  Receive Date: 20190320
  Receipt Date: 20190320
  Transmission Date: 20190418
  Serious: Yes (Hospitalization)
  Sender: FDA-Public Use
  Company Number: GB-ACCORD-113760

PATIENT
  Age: 40 Year
  Sex: Female
  Weight: 153 kg

DRUGS (9)
  1. VICTOZA [Concomitant]
     Active Substance: LIRAGLUTIDE
  2. DULOXETINE. [Concomitant]
     Active Substance: DULOXETINE
  3. METFORMIN [Concomitant]
     Active Substance: METFORMIN HYDROCHLORIDE
  4. AMITRIPTYLINE [Concomitant]
     Active Substance: AMITRIPTYLINE
  5. ZAPAIN [Concomitant]
     Active Substance: ACETAMINOPHEN\CODEINE PHOSPHATE
  6. GABAPENTIN. [Concomitant]
     Active Substance: GABAPENTIN
  7. RAMIPRIL. [Suspect]
     Active Substance: RAMIPRIL
     Indication: HYPERTENSION
     Route: 048
  8. AMLODIPINE [Concomitant]
     Active Substance: AMLODIPINE BESYLATE
  9. GLICLAZIDE [Concomitant]
     Active Substance: GLICLAZIDE

REACTIONS (6)
  - Anaphylactic reaction [Unknown]
  - Kidney infection [Recovering/Resolving]
  - Abdominal pain [Unknown]
  - Nausea [Unknown]
  - Vomiting [Unknown]
  - Urine output decreased [Unknown]

NARRATIVE: CASE EVENT DATE: 20181005
